FAERS Safety Report 22624003 (Version 1)
Quarter: 2023Q2

REPORT INFORMATION
  Report Type: Spontaneous
  Country: US (occurrence: None)
  Receive Date: 20230616
  Receipt Date: 20230616
  Transmission Date: 20230722
  Serious: Yes (Hospitalization)
  Sender: FDA-Public Use
  Company Number: None

PATIENT
  Age: 81 Year
  Sex: Female

DRUGS (1)
  1. LENALIDOMIDE [Suspect]
     Active Substance: LENALIDOMIDE
     Indication: Monoclonal gammopathy
     Dosage: 15MG QD ORAL?
     Route: 048
     Dates: start: 20221103

REACTIONS (4)
  - Dysarthria [None]
  - Aphasia [None]
  - Reading disorder [None]
  - Atrial fibrillation [None]

NARRATIVE: CASE EVENT DATE: 20230521
